FAERS Safety Report 18349746 (Version 1)
Quarter: 2020Q4

REPORT INFORMATION
  Report Type: Spontaneous
  Country: US (occurrence: US)
  Receive Date: 20201006
  Receipt Date: 20201006
  Transmission Date: 20210114
  Serious: No
  Sender: FDA-Public Use
  Company Number: None

PATIENT
  Age: 61 Year
  Sex: Male

DRUGS (8)
  1. COZAAR [Concomitant]
     Active Substance: LOSARTAN POTASSIUM
  2. PROAIR HFA [Concomitant]
     Active Substance: ALBUTEROL SULFATE
  3. PREDNISONE. [Concomitant]
     Active Substance: PREDNISONE
  4. CLARITIN [Concomitant]
     Active Substance: LORATADINE
  5. HUMIRA [Suspect]
     Active Substance: ADALIMUMAB
     Indication: PULMONARY FIBROSIS
     Dosage: ?          OTHER FREQUENCY:QOWK;?
     Route: 058
     Dates: start: 20190410
  6. PRILOSEC [Concomitant]
     Active Substance: OMEPRAZOLE MAGNESIUM
  7. MYCOPHENOLATE [Concomitant]
     Active Substance: MYCOPHENOLIC ACID
  8. CARVEDILOL. [Concomitant]
     Active Substance: CARVEDILOL

REACTIONS (4)
  - Condition aggravated [None]
  - Loss of personal independence in daily activities [None]
  - Pain [None]
  - Pulmonary fibrosis [None]
